FAERS Safety Report 4942865-0 (Version None)
Quarter: 2006Q1

REPORT INFORMATION
  Report Type: 
  Country: None (occurrence: None)
  Receive Date: 20060309
  Receipt Date: 20060223
  Transmission Date: 20060701
  Serious: Yes (Death, Hospitalization)
  Sender: FDA-Public Use
  Company Number: 2006029299

PATIENT
  Age: 66 Year
  Sex: Male
  Weight: 80 kg

DRUGS (6)
  1. SUTENT [Suspect]
     Indication: METASTATIC RENAL CELL CARCINOMA
     Dosage: 50  MG (50 MG, 1 IN 1 D), ORAL
     Route: 048
     Dates: start: 20051231, end: 20060127
  2. TOREM (TORASEMIDE) [Concomitant]
  3. LEVOFLOXACIN [Concomitant]
  4. IBUPROFEN [Concomitant]
  5. PANTOPRAZOLE SODIUM [Concomitant]
  6. TRAMADOL HCL [Concomitant]

REACTIONS (4)
  - GENERAL PHYSICAL HEALTH DETERIORATION [None]
  - MALIGNANT NEOPLASM PROGRESSION [None]
  - METASTATIC RENAL CELL CARCINOMA [None]
  - VOMITING [None]
